FAERS Safety Report 15287966 (Version 7)
Quarter: 2019Q2

REPORT INFORMATION
  Report Type: Spontaneous
  Country: US (occurrence: US)
  Receive Date: 20180817
  Receipt Date: 20190620
  Transmission Date: 20190711
  Serious: Yes (Hospitalization, Other)
  Sender: FDA-Public Use
  Company Number: US-PFIZER INC-2018330431

PATIENT
  Age: 89 Year
  Sex: Female

DRUGS (20)
  1. LYRICA [Suspect]
     Active Substance: PREGABALIN
     Indication: PAIN
     Dosage: 50 MG, 3X/DAY(UPON RISING 07:00AM-11:00AM,AFTERNOON 03:00PM- 05:00PM,BEFORE BEDTIME 06:00PM-10:00PM)
     Route: 048
     Dates: start: 20180913, end: 2018
  2. MYRBETRIQ [Concomitant]
     Active Substance: MIRABEGRON
     Indication: HYPERTONIC BLADDER
     Dosage: 25 MG, UNK
     Dates: start: 201803
  3. MYRBETRIQ [Concomitant]
     Active Substance: MIRABEGRON
     Dosage: 25 MG, 1X/DAY (UPON RISING 07:00 AM - 11:00 AM)
     Route: 048
     Dates: start: 20180907
  4. SERTRALINE HYDROCHLORIDE. [Concomitant]
     Active Substance: SERTRALINE HYDROCHLORIDE
     Indication: MAJOR DEPRESSION
     Dosage: 50 MG, 1X/DAY(UPON RISING 07:00 AM-11:00  AM)
     Route: 048
     Dates: start: 20180910
  5. TYLENOL EXTRA STRENGTH [Concomitant]
     Active Substance: ACETAMINOPHEN
     Indication: PAIN
     Dosage: 1000 MG, AS NEEDED Q 6 HOURS
     Route: 048
     Dates: start: 20180915
  6. METOPROLOL SUCCINATE. [Concomitant]
     Active Substance: METOPROLOL SUCCINATE
     Indication: ESSENTIAL HYPERTENSION
     Dosage: 25 MG, 1X/DAY (UPON RISING 07:00 AM - 11:00 AM)
     Route: 048
     Dates: start: 20180907
  7. LEVOTHYROXINE. [Concomitant]
     Active Substance: LEVOTHYROXINE
     Indication: HYPOTHYROIDISM
     Dosage: 75 UG, 1X/DAY (05:00 AM)
     Route: 048
     Dates: start: 20180907
  8. LIDOCAINE. [Concomitant]
     Active Substance: LIDOCAINE
     Indication: PAIN
     Dosage: UNK UNK, AS NEEDED (FOUR TIMES A DAY-PRN; UPON RISING, BEFORE LUNCH, AFTERNOON, BEFORE BEDTIME)
     Route: 061
     Dates: start: 20180907
  9. ATORVASTATIN [Concomitant]
     Active Substance: ATORVASTATIN
     Indication: HYPERLIPIDAEMIA
     Dosage: 40 MG, 1X/DAY (BEFORE BEDTIME 06:00 PM - 10:00 PM)
     Route: 048
     Dates: start: 20180907
  10. SERTRALINE HYDROCHLORIDE. [Concomitant]
     Active Substance: SERTRALINE HYDROCHLORIDE
     Dosage: 25 MG, 1X/DAY (UPON RISING 07:00 AM-11:00 AM)
     Route: 048
     Dates: start: 20180910
  11. TRAMADOL. [Concomitant]
     Active Substance: TRAMADOL
     Indication: PAIN
     Dosage: 50 MG, AS NEEDED (EVERY 8 HOURS - PRN)
     Route: 048
     Dates: start: 20180907
  12. FLONASE [Concomitant]
     Active Substance: FLUTICASONE PROPIONATE
     Indication: RHINITIS ALLERGIC
     Dosage: UNK UNK, 1X/DAY (50 MCG/ACTUATION;2 SPRAYS; NASAL IN TO EACH NOSTRIL UPON RISING 07:00 AM - 11AM)
     Route: 045
     Dates: start: 20180907
  13. ZOFRAN [Concomitant]
     Active Substance: ONDANSETRON HYDROCHLORIDE
     Indication: NAUSEA
     Dosage: 4 MG, AS NEEDED (PRN 1, PRN 2, PRN 3, PRN 4)
     Route: 048
     Dates: start: 20180908
  14. LYRICA [Suspect]
     Active Substance: PREGABALIN
     Indication: MAJOR DEPRESSION
     Dosage: 25 MG, TWICE A DAY
     Dates: start: 201803, end: 2018
  15. HYDRALAZINE [Concomitant]
     Active Substance: HYDRALAZINE HYDROCHLORIDE
     Indication: ESSENTIAL HYPERTENSION
     Dosage: 50 MG, 3X/DAY (UPON RISING 07:00AM-11:00AM,AFTERNOON 03:00PM-05:00PM,BEFORE BEDTIME 06:00PM-10:00PM)
     Route: 048
     Dates: start: 20180908
  16. PROTONIX [Concomitant]
     Active Substance: PANTOPRAZOLE SODIUM
     Indication: GASTROOESOPHAGEAL REFLUX DISEASE
     Dosage: 40 MG, 2X/DAY (UPON RISING 07:00AM-11:00AM, BEFORE BEDTIME 06:00PM-10:00PM)
     Route: 048
     Dates: start: 20180908
  17. AMLODIPINE BESYLATE. [Concomitant]
     Active Substance: AMLODIPINE BESYLATE
     Dosage: 10 MG, UNK
  18. ASPIRIN (E.C.) [Concomitant]
     Active Substance: ASPIRIN
     Indication: CEREBRAL ISCHAEMIA
     Dosage: 325 MG, 1X/DAY (UPON RISING 07: 00 AM-11:00 AM)
     Route: 048
     Dates: start: 20180911
  19. TRAZODONE [Concomitant]
     Active Substance: TRAZODONE HYDROCHLORIDE
     Indication: INSOMNIA
     Dosage: 50 MG, AS NEEDED (ONCE A DAY - PRN; BEFORE BEDTIME)
     Route: 048
     Dates: start: 20180913
  20. AMLODIPINE [Concomitant]
     Active Substance: AMLODIPINE BESYLATE
     Indication: ESSENTIAL HYPERTENSION
     Dosage: 10 MG, 1X/DAY (UPON RISING 07:00 AM - 11:00 AM)
     Route: 048
     Dates: start: 20180907

REACTIONS (9)
  - Disease recurrence [Unknown]
  - Gait disturbance [Unknown]
  - Cerebrovascular accident [Not Recovered/Not Resolved]
  - Transient ischaemic attack [Not Recovered/Not Resolved]
  - Gastrointestinal haemorrhage [Unknown]
  - Speech disorder [Unknown]
  - Asthenia [Unknown]
  - Withdrawal syndrome [Recovered/Resolved]
  - Suicidal ideation [Recovered/Resolved]

NARRATIVE: CASE EVENT DATE: 2018
